FAERS Safety Report 9836542 (Version 2)
Quarter: 2014Q1

REPORT INFORMATION
  Report Type: Report from Study
  Country: US (occurrence: US)
  Receive Date: 20140123
  Receipt Date: 20140206
  Transmission Date: 20141002
  Serious: Yes (Death)
  Sender: FDA-Public Use
  Company Number: US-ROCHE-1337658

PATIENT
  Age: 64 Year
  Sex: Male

DRUGS (1)
  1. KADCYLA [Suspect]
     Indication: OESOPHAGEAL CARCINOMA
     Route: 065

REACTIONS (1)
  - Oesophageal cancer metastatic [Fatal]
